FAERS Safety Report 7247222-2 (Version None)
Quarter: 2011Q1

REPORT INFORMATION
  Report Type: 
  Country: None (occurrence: None)
  Receive Date: 20110127
  Receipt Date: 20110119
  Transmission Date: 20110831
  Serious: Yes (Death, Other)
  Sender: FDA-Public Use
  Company Number: DE-GENZYME-FLUD-1000657

PATIENT
  Age: 42 Year
  Sex: Male

DRUGS (14)
  1. MELPHALAN [Suspect]
     Indication: STEM CELL TRANSPLANT
  2. CARMUSTINE [Suspect]
     Indication: BONE MARROW CONDITIONING REGIMEN
     Dosage: UNK
     Route: 065
  3. CAMPATH [Suspect]
     Dosage: 5-10 MG/KG QD EVERY 2-3 WEEKS
     Route: 042
  4. TRIMETHOPRIM + SULFAMETHOXAZOLE [Concomitant]
     Indication: INFECTION PROPHYLAXIS
     Dosage: UNK
     Route: 065
  5. MYCOPHENOLATE MOFETIL [Concomitant]
     Indication: PROPHYLAXIS AGAINST GRAFT VERSUS HOST DISEASE
     Dosage: UNK
     Route: 065
  6. ACYCLOVIR [Concomitant]
     Indication: INFECTION PROPHYLAXIS
     Dosage: UNK
     Route: 065
  7. CAMPATH [Suspect]
     Indication: ACUTE GRAFT VERSUS HOST DISEASE
     Dosage: 3-13 MG/KG QD FOR 1-2 DAYS INITIALLY
     Route: 042
  8. CARMUSTINE [Suspect]
     Indication: STEM CELL TRANSPLANT
  9. MELPHALAN [Suspect]
     Indication: BONE MARROW CONDITIONING REGIMEN
     Dosage: UNK
     Route: 065
  10. CYCLOSPORINE [Concomitant]
     Indication: PROPHYLAXIS AGAINST GRAFT VERSUS HOST DISEASE
     Dosage: UNK
     Route: 065
  11. FLUDARA [Suspect]
     Indication: BONE MARROW CONDITIONING REGIMEN
     Dosage: UNK
     Route: 065
  12. FLUCONAZOLE [Concomitant]
     Indication: INFECTION PROPHYLAXIS
     Dosage: UNK
     Route: 065
  13. FLUDARA [Suspect]
     Indication: STEM CELL TRANSPLANT
  14. CORTICOSTEROIDS [Concomitant]
     Indication: GRAFT VERSUS HOST DISEASE
     Dosage: }/= 2 MG/KG QD FOR }/= 7 DAYS

REACTIONS (9)
  - SYSTEMIC INFLAMMATORY RESPONSE SYNDROME [None]
  - ACUTE RESPIRATORY DISTRESS SYNDROME [None]
  - ERYTHEMA INFECTIOSUM [None]
  - CHRONIC GRAFT VERSUS HOST DISEASE [None]
  - ACUTE GRAFT VERSUS HOST DISEASE [None]
  - CYTOMEGALOVIRUS INFECTION [None]
  - ORGANISING PNEUMONIA [None]
  - DEATH [None]
  - PNEUMONIA RESPIRATORY SYNCYTIAL VIRAL [None]
